FAERS Safety Report 10585638 (Version 3)
Quarter: 2015Q2

REPORT INFORMATION
  Report Type: Spontaneous
  Country: US (occurrence: US)
  Receive Date: 20141114
  Receipt Date: 20150604
  Transmission Date: 20150821
  Serious: Yes (Hospitalization, Disabling, Other)
  Sender: FDA-Public Use
  Company Number: US-009507513-1411USA006152

PATIENT
  Sex: Female

DRUGS (2)
  1. ALENDRONATE SODIUM. [Suspect]
     Active Substance: ALENDRONATE SODIUM
     Indication: OSTEOPOROSIS PROPHYLAXIS
     Dosage: 70 MG, UNK
     Route: 048
     Dates: start: 20080214, end: 201308
  2. FOSAMAX [Suspect]
     Active Substance: ALENDRONATE SODIUM
     Indication: OSTEOPOROSIS PROPHYLAXIS
     Dosage: 70 MG, UNK
     Route: 048
     Dates: start: 20011211, end: 20080114

REACTIONS (15)
  - Mitral valve prolapse [Unknown]
  - Osteoarthritis [Unknown]
  - Emotional distress [Not Recovered/Not Resolved]
  - Intramedullary rod insertion [Unknown]
  - Low turnover osteopathy [Not Recovered/Not Resolved]
  - Blood cholesterol increased [Unknown]
  - Arthralgia [Unknown]
  - Osteopenia [Unknown]
  - Femur fracture [Not Recovered/Not Resolved]
  - Fracture delayed union [Unknown]
  - Radiotherapy [Unknown]
  - Bursitis [Unknown]
  - Gastrooesophageal reflux disease [Unknown]
  - Breast cancer [Unknown]
  - Hypertension [Unknown]

NARRATIVE: CASE EVENT DATE: 200210
